FAERS Safety Report 5230461-X (Version None)
Quarter: 2007Q1

REPORT INFORMATION
  Report Type: 
  Country: None (occurrence: None)
  Receive Date: 20070206
  Receipt Date: 20070125
  Transmission Date: 20070707
  Serious: Yes (Other)
  Sender: FDA-Public Use
  Company Number: CA-ELI_LILLY_AND_COMPANY-CA200701005736

PATIENT
  Age: 84 Year
  Sex: Female

DRUGS (10)
  1. FORTEO [Suspect]
     Indication: OSTEOPOROSIS
     Dosage: 20 UG, DAILY (1/D)
     Route: 058
     Dates: start: 20060728
  2. DIOVAN [Concomitant]
  3. FOLIC ACID [Concomitant]
  4. LIPITOR [Concomitant]
  5. CALCIUM [Concomitant]
  6. VITAMIN D [Concomitant]
  7. HYDROXYCHLOROQUINE SULFATE [Concomitant]
  8. PREDNISONE [Concomitant]
  9. ACETAMINOPHEN [Concomitant]
     Dosage: 650 MG, AS NEEDED
  10. METHOTREXATE [Concomitant]

REACTIONS (1)
  - PLATELET COUNT DECREASED [None]
